FAERS Safety Report 24699971 (Version 2)
Quarter: 2025Q4

REPORT INFORMATION
  Report Type: Spontaneous
  Country: US (occurrence: US)
  Receive Date: 20241205
  Receipt Date: 20251113
  Transmission Date: 20260118
  Serious: No
  Sender: ALIMERA
  Company Number: US-ALIMERA SCIENCES INC.-US-A16013-24-000438

PATIENT
  Age: 77 Year
  Sex: Male

DRUGS (1)
  1. YUTIQ [Suspect]
     Active Substance: FLUOCINOLONE ACETONIDE
     Indication: Cystoid macular oedema
     Dosage: 0.18 MILLIGRAM, SINGLE -LEFT EYE
     Route: 031
     Dates: start: 20240617, end: 20240617

REACTIONS (4)
  - Circumstance or information capable of leading to medication error [Recovered/Resolved]
  - Device failure [Recovered/Resolved]
  - Needle issue [Recovered/Resolved]
  - Off label use [Recovered/Resolved]

NARRATIVE: CASE EVENT DATE: 20240617
